FAERS Safety Report 15953512 (Version 1)
Quarter: 2019Q1

REPORT INFORMATION
  Report Type: Spontaneous
  Country: AT (occurrence: AT)
  Receive Date: 20190212
  Receipt Date: 20190212
  Transmission Date: 20190417
  Serious: Yes (Other)
  Sender: FDA-Public Use
  Company Number: AT-PFIZER INC-2019054772

PATIENT
  Age: 85 Year
  Sex: Female

DRUGS (9)
  1. TENORMIN [Concomitant]
     Active Substance: ATENOLOL
     Dosage: 50MG-0-25MG-0
  2. TEBOFORTAN [Concomitant]
     Active Substance: GINKGO
     Dosage: 40 MG, 2X/DAY (1-0-1-0)
  3. XELJANZ [Suspect]
     Active Substance: TOFACITINIB CITRATE
     Indication: RHEUMATOID ARTHRITIS
     Dosage: 5 MG, UNK
     Dates: start: 20181126, end: 201812
  4. APREDNISLON [Concomitant]
     Active Substance: PREDNISOLONE
     Dosage: UNK
  5. VIMOVO [Concomitant]
     Active Substance: ESOMEPRAZOLE MAGNESIUM\NAPROXEN
     Dosage: 1 DF (500MG/20MG), AS NEEDED
  6. XELJANZ [Suspect]
     Active Substance: TOFACITINIB CITRATE
     Dosage: 2.5 MG, UNK
     Dates: start: 20181219, end: 20190107
  7. APREDNISLON [Concomitant]
     Active Substance: PREDNISOLONE
     Dosage: REDUCED TO 2.5 MG, ALTERNATE DAY
     Dates: start: 20181126
  8. CALCIDURAN VIT. D3 [Concomitant]
     Active Substance: CALCIUM CARBONATE\CHOLECALCIFEROL
     Dosage: 500 MG (=800 IE), 1X/DAY (1-0-0-0)
  9. NOVOTHYRAL [Concomitant]
     Active Substance: LEVOTHYROXINE SODIUM\LIOTHYRONINE SODIUM
     Dosage: 0.5 DF, UNK (0.5 DF -0-0-0)

REACTIONS (7)
  - Malaise [Unknown]
  - Vertigo [Recovering/Resolving]
  - Dry mouth [Recovering/Resolving]
  - Fatigue [Unknown]
  - Vomiting [Recovering/Resolving]
  - Angina pectoris [Recovering/Resolving]
  - Chills [Recovering/Resolving]

NARRATIVE: CASE EVENT DATE: 201812
